FAERS Safety Report 5695420-1 (Version None)
Quarter: 2008Q2

REPORT INFORMATION
  Report Type: 
  Country: None (occurrence: None)
  Receive Date: 20080403
  Receipt Date: 20080320
  Transmission Date: 20081010
  Serious: Yes (Hospitalization)
  Sender: FDA-Public Use
  Company Number: 232784J08USA

PATIENT
  Age: 38 Year
  Sex: Male

DRUGS (1)
  1. REBIF [Suspect]
     Indication: MULTIPLE SCLEROSIS
     Dosage: 44 MCG, 3 IN 1 WEEKS, SUBCUTANEOUS
     Route: 058
     Dates: start: 20050920

REACTIONS (7)
  - AMNESIA [None]
  - FACIAL BONES FRACTURE [None]
  - FALL [None]
  - HEAD INJURY [None]
  - JOINT DISLOCATION [None]
  - PARAESTHESIA [None]
  - VERTIGO [None]
